FAERS Safety Report 8179472-5 (Version None)
Quarter: 2012Q1

REPORT INFORMATION
  Report Type: 
  Country: None (occurrence: None)
  Receive Date: 20120302
  Receipt Date: 20120221
  Transmission Date: 20120608
  Serious: Yes (Hospitalization)
  Sender: FDA-Public Use
  Company Number: US-JNJFOC-20120211395

PATIENT
  Sex: Female

DRUGS (11)
  1. ASPIRIN [Concomitant]
     Indication: PROPHYLAXIS
     Route: 048
  2. DURAGESIC-100 [Suspect]
     Indication: BACK PAIN
     Route: 062
  3. NORVASC [Concomitant]
     Indication: HYPERTENSION
     Route: 048
  4. PEPCID [Concomitant]
     Indication: GASTROOESOPHAGEAL REFLUX DISEASE
     Route: 048
  5. FENTANYL-100 [Suspect]
     Indication: BACK PAIN
     Dosage: 2-75UG/HR
     Route: 062
  6. AN UNKNOWN MEDICATION [Concomitant]
     Dosage: 40 UNITS EVERY MORNING
     Route: 058
  7. FENTANYL-100 [Suspect]
     Indication: BACK PAIN
     Dosage: 2-75UG/HR
     Route: 062
  8. ZOCOR [Concomitant]
     Indication: HYPERLIPIDAEMIA
     Route: 048
  9. PRINIVIL [Concomitant]
     Indication: HYPERTENSION
     Route: 048
  10. AN UNKNOWN MEDICATION [Concomitant]
     Indication: DIABETES MELLITUS
     Dosage: 30 UNITS EVERY EVENING
     Route: 058
  11. FENTANYL-100 [Suspect]
     Route: 062
     Dates: start: 20100101

REACTIONS (5)
  - WRONG TECHNIQUE IN DRUG USAGE PROCESS [None]
  - INFECTION [None]
  - FALL [None]
  - PRODUCT QUALITY ISSUE [None]
  - ADVERSE DRUG REACTION [None]
